FAERS Safety Report 7599546-7 (Version None)
Quarter: 2011Q3

REPORT INFORMATION
  Report Type: 
  Country: None (occurrence: None)
  Receive Date: 20110711
  Receipt Date: 20110630
  Transmission Date: 20111222
  Serious: Yes (Hospitalization)
  Sender: FDA-Public Use
  Company Number: CH-BRISTOL-MYERS SQUIBB COMPANY-15882871

PATIENT
  Age: 69 Year
  Sex: Male

DRUGS (6)
  1. GLUCOPHAGE [Suspect]
     Dosage: INTERRUPTED ON 09MAY2011 AND RESTAT IN 2011
     Route: 048
  2. GLYBURIDE [Suspect]
     Dosage: INTERRUPTED ON 09MAY2011 AND RESTAT IN 2011
     Route: 048
  3. VASERETIC [Concomitant]
     Route: 048
  4. PANTOPRAZOLE [Concomitant]
     Route: 048
  5. SIMVASTATIN [Concomitant]
     Route: 048
  6. SINTROM [Concomitant]
     Route: 048

REACTIONS (2)
  - HYPOGLYCAEMIA [None]
  - CONFUSIONAL STATE [None]
